FAERS Safety Report 4977513-7 (Version None)
Quarter: 2006Q2

REPORT INFORMATION
  Report Type: 
  Country: None (occurrence: None)
  Receive Date: 20060420
  Receipt Date: 20060413
  Transmission Date: 20061013
  Serious: Yes (Life-Threatening)
  Sender: FDA-Public Use
  Company Number: US-JNJFOC-20060403845

PATIENT
  Age: 36 Year
  Sex: Female

DRUGS (2)
  1. PEPCID COMPLETE BERRY [Suspect]
  2. PEPCID COMPLETE BERRY [Suspect]
     Indication: DRUG USE FOR UNKNOWN INDICATION
     Dosage: UNKNOWN

REACTIONS (2)
  - CARDIAC ARREST [None]
  - LONG QT SYNDROME [None]
